FAERS Safety Report 5082062-4 (Version None)
Quarter: 2006Q3

REPORT INFORMATION
  Report Type: 
  Country: None (occurrence: None)
  Receive Date: 20060817
  Receipt Date: 20060807
  Transmission Date: 20061208
  Serious: Yes (Other)
  Sender: FDA-Public Use
  Company Number: US-SOLVAY-00206002568

PATIENT
  Age: 776 Month
  Sex: Female
  Weight: 68 kg

DRUGS (4)
  1. OGEN [Concomitant]
     Indication: HORMONE REPLACEMENT THERAPY
     Dosage: DAILY DOSE: .75 MILLIGRAM(S)
     Route: 048
     Dates: start: 19940101
  2. PROMETRIUM [Suspect]
     Indication: HORMONE REPLACEMENT THERAPY
     Dosage: DAILY DOSE: 100 MILLIGRAM(S)
     Route: 048
     Dates: start: 20051101, end: 20060731
  3. ATENOLOL [Concomitant]
     Indication: HYPERTENSION
     Dosage: DAILY DOSE: 25 MILLIGRAM(S)
     Route: 048
     Dates: start: 20030101
  4. ALLERGY INJECTIONS [Concomitant]
     Indication: HYPERSENSITIVITY
     Dosage: DAILY DOSE:  UNKNOWN
     Route: 058

REACTIONS (2)
  - CERVICAL DYSPLASIA [None]
  - ENDOMETRIAL HYPERTROPHY [None]
